FAERS Safety Report 19302200 (Version 1)
Quarter: 2021Q2

REPORT INFORMATION
  Report Type: Spontaneous
  Country: US (occurrence: US)
  Receive Date: 20210525
  Receipt Date: 20210525
  Transmission Date: 20210717
  Serious: Yes (Other)
  Sender: FDA-Public Use
  Company Number: None

PATIENT
  Age: 27 Year
  Sex: Female
  Weight: 99.9 kg

DRUGS (6)
  1. IBUPROFEN. [Concomitant]
     Active Substance: IBUPROFEN
  2. GLUCOSAMINE [Concomitant]
     Active Substance: GLUCOSAMINE
  3. SEROQUEL [Suspect]
     Active Substance: QUETIAPINE FUMARATE
     Indication: SCHIZOPHRENIA
     Dosage: ?          QUANTITY:1 TABLET(S);?
     Route: 048
     Dates: start: 19940101, end: 19940101
  4. CETIRIZINE [Concomitant]
     Active Substance: CETIRIZINE HYDROCHLORIDE
  5. DIABETIC FOOT CREAM [Concomitant]
     Active Substance: DIMETHICONE
  6. MULTIVITAMIN [Concomitant]
     Active Substance: VITAMINS

REACTIONS (7)
  - Back pain [None]
  - Weight increased [None]
  - Constipation [None]
  - Dysuria [None]
  - Poor quality sleep [None]
  - Ovarian cyst [None]
  - Abdominal discomfort [None]

NARRATIVE: CASE EVENT DATE: 19940101
